FAERS Safety Report 7357594-6 (Version None)
Quarter: 2011Q1

REPORT INFORMATION
  Report Type: 
  Country: None (occurrence: None)
  Receive Date: 20110317
  Receipt Date: 20110307
  Transmission Date: 20110831
  Serious: Yes (Death)
  Sender: FDA-Public Use
  Company Number: US-CELGENEUS-163-21880-10112145

PATIENT
  Sex: Female

DRUGS (4)
  1. REVLIMID [Suspect]
     Dosage: 25 MILLIGRAM
     Route: 048
     Dates: start: 20100601, end: 20101120
  2. IRON [Concomitant]
     Dosage: 325 MILLIGRAM
     Route: 048
  3. REVLIMID [Suspect]
     Indication: MULTIPLE MYELOMA
     Dosage: 25 MILLIGRAM
     Route: 048
     Dates: start: 20080401
  4. INSULIN [Concomitant]
     Dosage: SLIDING SCALE
     Route: 065

REACTIONS (3)
  - RASH [None]
  - DEATH [None]
  - BRONCHITIS [None]
